FAERS Safety Report 7128414-X (Version None)
Quarter: 2010Q4

REPORT INFORMATION
  Report Type: 
  Country: None (occurrence: None)
  Receive Date: 20101130
  Receipt Date: 20101108
  Transmission Date: 20110411
  Serious: Yes (Other)
  Sender: FDA-Public Use
  Company Number: DE-SANOFI-AVENTIS-2010SA067777

PATIENT
  Sex: Female

DRUGS (6)
  1. MULTAQ [Suspect]
     Route: 065
     Dates: start: 20101001
  2. RANOLAZINE [Interacting]
     Route: 065
  3. NEBIVOLOL HCL [Concomitant]
     Route: 065
  4. CANDESARTAN CILEXETIL/HYDROCHLOROTHIAZIDE [Concomitant]
     Route: 065
  5. LEVOTHYROXINE SODIUM [Concomitant]
     Route: 065
  6. PLAVIX [Concomitant]
     Route: 065

REACTIONS (3)
  - ANGINA PECTORIS [None]
  - DRUG INTERACTION [None]
  - DYSPNOEA [None]
